FAERS Safety Report 9768972 (Version 4)
Quarter: 2014Q1

REPORT INFORMATION
  Report Type: Spontaneous
  Country: IT (occurrence: None)
  Receive Date: 20131216
  Receipt Date: 20140227
  Transmission Date: 20141002
  Serious: Yes (Other)
  Sender: FDA-Public Use
  Company Number: SYM-2013-13959

PATIENT
  Age: 57 Year
  Sex: Female

DRUGS (7)
  1. XENAZINA [Suspect]
     Indication: DYSKINESIA
     Route: 048
     Dates: start: 20130422, end: 20131014
  2. TEGRETOL (CARBAMAZEPINE) (CARBAMAZEPINE) [Concomitant]
  3. ENTUMIN (CLOTIAPINE) (CLOTIAPINE)? [Concomitant]
  4. EN (DELORAZEPAM)  (DELORAZEPAM)? [Concomitant]
  5. RISPERIDON (RISPERIDONE) (RISPERIDONE) [Concomitant]
  6. CALCIUM CARBONATE (CALCIUM CARBONATE) (CALCIUM CARBONATE) [Concomitant]
  7. CHOLECALCIFEROL (COLECALCIFEROL) (COLECALCIFEROL) [Concomitant]

REACTIONS (3)
  - Leukopenia [None]
  - Muscle rigidity [None]
  - Condition aggravated [None]
